FAERS Safety Report 5977783-2 (Version None)
Quarter: 2008Q4

REPORT INFORMATION
  Report Type: 
  Country: None (occurrence: None)
  Receive Date: 20081203
  Receipt Date: 20081125
  Transmission Date: 20090506
  Serious: Yes (Death)
  Sender: FDA-Public Use
  Company Number: US-GILEAD-2008-0019195

PATIENT
  Sex: Female
  Weight: 68.1 kg

DRUGS (13)
  1. LETAIRIS [Suspect]
     Indication: PULMONARY ARTERIAL HYPERTENSION
     Route: 048
     Dates: start: 20070829
  2. VIAGRA [Concomitant]
  3. NORVASC [Concomitant]
  4. MAVIK [Concomitant]
  5. OXYGEN [Concomitant]
  6. ASPIRIN [Concomitant]
  7. FLOVENT [Concomitant]
  8. COMBIVENT [Concomitant]
  9. PREDNISONE TAB [Concomitant]
  10. FOSAMAX [Concomitant]
  11. FLAXSEED OIL [Concomitant]
  12. FISH OIL [Concomitant]
  13. MULTI-VITAMIN [Concomitant]

REACTIONS (1)
  - DEATH [None]
